FAERS Safety Report 20466794 (Version 3)
Quarter: 2022Q1

REPORT INFORMATION
  Report Type: Report from Study
  Country: AU (occurrence: AU)
  Receive Date: 20220214
  Receipt Date: 20220321
  Transmission Date: 20220423
  Serious: Yes (Other)
  Sender: FDA-Public Use
  Company Number: AU-JNJFOC-20220216439

PATIENT
  Sex: Male

DRUGS (1)
  1. IMBRUVICA [Suspect]
     Active Substance: IBRUTINIB
     Indication: Chronic lymphocytic leukaemia
     Route: 048
     Dates: start: 20170501

REACTIONS (4)
  - Glaucoma [Not Recovered/Not Resolved]
  - Cataract operation [Recovered/Resolved]
  - Musculoskeletal disorder [Not Recovered/Not Resolved]
  - Confusional state [Unknown]
